FAERS Safety Report 13231423 (Version 3)
Quarter: 2017Q2

REPORT INFORMATION
  Report Type: Spontaneous
  Country: US (occurrence: US)
  Receive Date: 20170214
  Receipt Date: 20170424
  Transmission Date: 20170830
  Serious: Yes (Other)
  Sender: FDA-Public Use
  Company Number: US-BAYER-2017-029221

PATIENT
  Age: 22 Year
  Sex: Female
  Weight: 80.64 kg

DRUGS (2)
  1. SKYLA [Suspect]
     Active Substance: LEVONORGESTREL
     Indication: CONTRACEPTION
     Dosage: 14 MCG/24HR, CONT
     Route: 015
     Dates: start: 20130510, end: 20160607
  2. SKYLA [Suspect]
     Active Substance: LEVONORGESTREL
     Indication: CONTRACEPTION
     Dosage: 14 MCG/24HR, CONT
     Route: 015
     Dates: start: 20160607, end: 20170128

REACTIONS (7)
  - Haemorrhage in pregnancy [None]
  - Haemorrhage in pregnancy [None]
  - Device use issue [None]
  - Ectopic pregnancy with contraceptive device [None]
  - Pelvic pain [None]
  - Amenorrhoea [None]
  - Drug ineffective [None]

NARRATIVE: CASE EVENT DATE: 2017
